FAERS Safety Report 9318808 (Version 3)
Quarter: 2013Q2

REPORT INFORMATION
  Report Type: Spontaneous
  Country: JP (occurrence: None)
  Receive Date: 20130524
  Receipt Date: 20130627
  Transmission Date: 20140414
  Serious: Yes (Hospitalization)
  Sender: FDA-Public Use
  Company Number: TCI2013A02733

PATIENT
  Age: 50 Year
  Sex: Male

DRUGS (6)
  1. NESINA [Suspect]
     Indication: TYPE 2 DIABETES MELLITUS
     Dosage: (12.5 MG, 1 IN 1 D)
     Route: 048
     Dates: start: 20120218, end: 20120512
  2. AMARYL (GLIMEPIRIDE) [Concomitant]
  3. DIOVAN (VALSARTAN) [Concomitant]
  4. MEVALOTIN (PRAVSTATIN SODIUM) [Concomitant]
  5. AROTINOLOL HYDROCHLORIDE [Concomitant]
  6. XYZAL [Concomitant]

REACTIONS (6)
  - Anal fistula [None]
  - Proctalgia [None]
  - Anal polyp [None]
  - Blood pressure increased [None]
  - Anal abscess [None]
  - Glycosylated haemoglobin increased [None]
